FAERS Safety Report 9168992 (Version 1)
Quarter: 2013Q1

REPORT INFORMATION
  Report Type: Spontaneous
  Country: US (occurrence: None)
  Receive Date: 20130314
  Receipt Date: 20130314
  Transmission Date: 20140127
  Serious: Yes (Life-Threatening)
  Sender: FDA-Public Use
  Company Number: None

PATIENT
  Age: 78 Year
  Sex: Male
  Weight: 78.6 kg

DRUGS (1)
  1. ENOXAPARIN (GENERIC) [Suspect]
     Indication: PAIN
     Dosage: 80 MG BID SQ
     Route: 058
     Dates: start: 20130118, end: 20130124

REACTIONS (6)
  - Pain in extremity [None]
  - Neck pain [None]
  - Headache [None]
  - Myalgia [None]
  - Arthralgia [None]
  - Angina pectoris [None]
